FAERS Safety Report 19448705 (Version 1)
Quarter: 2021Q2

REPORT INFORMATION
  Report Type: Spontaneous
  Country: US (occurrence: US)
  Receive Date: 20210622
  Receipt Date: 20210622
  Transmission Date: 20210717
  Serious: Yes (Other)
  Sender: FDA-Public Use
  Company Number: US-PFIZER INC-2020246831

PATIENT
  Age: 66 Year
  Sex: Male

DRUGS (2)
  1. INLYTA [Suspect]
     Active Substance: AXITINIB
     Indication: RENAL CELL CARCINOMA
     Dosage: 4 MG EVERY 12 HOURS
     Route: 048
  2. INLYTA [Suspect]
     Active Substance: AXITINIB
     Dosage: UNK
     Dates: start: 20200520, end: 20210421

REACTIONS (3)
  - Cardiac failure congestive [Unknown]
  - Cardiomyopathy [Unknown]
  - Neoplasm progression [Unknown]
